FAERS Safety Report 5304553-0 (Version None)
Quarter: 2007Q2

REPORT INFORMATION
  Report Type: 
  Country: None (occurrence: None)
  Receive Date: 20070423
  Receipt Date: 20070412
  Transmission Date: 20071010
  Serious: Yes (Hospitalization)
  Sender: FDA-Public Use
  Company Number: IT-NOVOPROD-261734

PATIENT

DRUGS (8)
  1. NOVOSEVEN [Suspect]
     Indication: HAEMORRHAGE
     Dosage: 11.1-21.5 UG/KG IN STUDY GROUP
     Route: 042
  2. MORPHINE [Concomitant]
     Indication: PREMEDICATION
     Dosage: 0.1 MG/KG
     Route: 030
  3. SCOPOLAMINE                        /00008701/ [Concomitant]
     Indication: PREMEDICATION
     Dosage: 40 UG/KG
     Route: 030
  4. SUFENTANIL CITRATE [Concomitant]
     Dosage: 1 UG/KG
  5. MIDAZOLAM HCL [Concomitant]
     Dosage: 0.1 MG/KG
  6. NIMBEX [Concomitant]
     Dosage: 100 UG/KG
  7. HEPARIN [Concomitant]
  8. PROTAMINE HYDROCHLORIDE [Concomitant]
     Dosage: 0.6 MG PER 100 U HEPARIN

REACTIONS (1)
  - RENAL FAILURE [None]
